FAERS Safety Report 8679270 (Version 2)
Quarter: 2012Q4

REPORT INFORMATION
  Report Type: 
  Country: BO (occurrence: BO)
  Receive Date: 20120724
  Receipt Date: 20120831
  Transmission Date: 20130627
  Serious: Yes (Death, Hospitalization, Other)
  Sender: FDA-Public Use
  Company Number: PHHY2012BO062276

PATIENT
  Sex: Female

DRUGS (2)
  1. GLIVEC [Suspect]
     Indication: CHRONIC MYELOID LEUKAEMIA
     Dosage: 400 mg, daily
     Route: 048
     Dates: start: 201007
  2. GLIVEC [Suspect]
     Dosage: 300 mg, daily
     Route: 048

REACTIONS (5)
  - Sepsis [Fatal]
  - Chronic myeloid leukaemia [Unknown]
  - Malignant neoplasm progression [Unknown]
  - Treatment failure [Unknown]
  - Drug resistance [Unknown]
